FAERS Safety Report 6543103-8 (Version None)
Quarter: 2010Q1

REPORT INFORMATION
  Report Type: 
  Country: None (occurrence: None)
  Receive Date: 20100120
  Receipt Date: 20100113
  Transmission Date: 20100710
  Serious: Yes (Hospitalization, Other)
  Sender: FDA-Public Use
  Company Number: PHHY2010BR02092

PATIENT
  Age: 76 Year
  Sex: Female
  Weight: 55 kg

DRUGS (2)
  1. EXELON [Suspect]
     Indication: DEMENTIA ALZHEIMER'S TYPE
     Dosage: 9.5MG/5CM2 EVERY 24 HOURS
     Route: 062
     Dates: start: 20090101
  2. EXELON [Suspect]
     Dosage: 9.5MG/5CM2 EVERY 24 HOURS
     Route: 062

REACTIONS (8)
  - AGGRESSION [None]
  - AGITATION [None]
  - CARDIO-RESPIRATORY ARREST [None]
  - FALL [None]
  - HIP FRACTURE [None]
  - INFECTION [None]
  - INSOMNIA [None]
  - VOMITING [None]
